FAERS Safety Report 4340813-8 (Version None)
Quarter: 2004Q2

REPORT INFORMATION
  Report Type: 
  Country: None (occurrence: None)
  Receive Date: 20040419
  Receipt Date: 20030513
  Transmission Date: 20050107
  Serious: No
  Sender: FDA-Public Use
  Company Number: US-GLAXOSMITHKLINE-A0408570A

PATIENT

DRUGS (3)
  1. ESKALITH [Suspect]
     Indication: ILL-DEFINED DISORDER
     Route: 048
  2. AUGMENTIN [Suspect]
     Indication: ILL-DEFINED DISORDER
     Route: 065
  3. LITHOBID [Concomitant]
     Route: 065

REACTIONS (3)
  - DRUG INTERACTION [None]
  - FEELING JITTERY [None]
  - TREMOR [None]
